FAERS Safety Report 9458078 (Version 1)
Quarter: 2013Q3

REPORT INFORMATION
  Report Type: Spontaneous
  Country: NL (occurrence: NL)
  Receive Date: 20130814
  Receipt Date: 20130814
  Transmission Date: 20140515
  Serious: Yes (Life-Threatening, Hospitalization)
  Sender: FDA-Public Use
  Company Number: NL-TEVA-423521ISR

PATIENT
  Age: 57 Year
  Sex: Female
  Weight: 99 kg

DRUGS (3)
  1. DICLOFENAC POTASSIUM [Suspect]
     Indication: OSTEOARTHRITIS
     Dosage: 150 MILLIGRAM DAILY; 3 TIMES DAILY ONE PIECE, EXTRA INFO: USED ONCE
     Route: 048
     Dates: start: 20130715, end: 20130715
  2. HYDROCHLOORTHIAZIDE TABLET 25MG [Interacting]
     Indication: HYPERTENSION
     Dosage: 25 MILLIGRAM DAILY; ONCE DAILY ONE PIECE
     Route: 048
     Dates: start: 20130613
  3. PAROXETINE TABLET 20MG (ALS HCL-0-WATER) [Concomitant]
     Dosage: 20 MILLIGRAM DAILY; ONCE DAILY ONE PIECE
     Route: 048
     Dates: start: 20130613

REACTIONS (3)
  - Anaphylactic shock [Recovered/Resolved]
  - Drug interaction [Unknown]
  - Hypersensitivity [Unknown]
